FAERS Safety Report 19714050 (Version 1)
Quarter: 2021Q3

REPORT INFORMATION
  Report Type: Spontaneous
  Country: US (occurrence: US)
  Receive Date: 20210818
  Receipt Date: 20210818
  Transmission Date: 20211014
  Serious: Yes (Other)
  Sender: FDA-Public Use
  Company Number: None

PATIENT
  Age: 73 Year
  Sex: Male
  Weight: 75.4 kg

DRUGS (1)
  1. HEPARIN 1000 UNITS/ML 10ML VIAL [Suspect]
     Active Substance: HEPARIN SODIUM
     Indication: INTRAOPERATIVE CARE
     Route: 040
     Dates: start: 20210807, end: 20210807

REACTIONS (2)
  - Product quality issue [None]
  - Coagulation time shortened [None]

NARRATIVE: CASE EVENT DATE: 20210807
